FAERS Safety Report 24890005 (Version 1)
Quarter: 2025Q1

REPORT INFORMATION
  Report Type: Spontaneous
  Country: CN (occurrence: CN)
  Receive Date: 20250127
  Receipt Date: 20250127
  Transmission Date: 20250409
  Serious: Yes (Life-Threatening, Hospitalization, Other)
  Sender: SANOFI AVENTIS
  Company Number: CN-SA-2025SA025127

PATIENT
  Age: 74 Year
  Sex: Male

DRUGS (2)
  1. PLAVIX [Suspect]
     Active Substance: CLOPIDOGREL BISULFATE
     Indication: Chest discomfort
     Dosage: 75MG QD
     Route: 048
     Dates: start: 20250120, end: 20250120
  2. ASPIRIN [Suspect]
     Active Substance: ASPIRIN
     Indication: Chest discomfort
     Dosage: 100 MG, QD
     Route: 048
     Dates: start: 20250120, end: 20250120

REACTIONS (3)
  - Anaemia [Unknown]
  - Platelet count decreased [Unknown]
  - Immune thrombocytopenia [Unknown]

NARRATIVE: CASE EVENT DATE: 20250120
